FAERS Safety Report 20162704 (Version 2)
Quarter: 2021Q4

REPORT INFORMATION
  Report Type: Report from Study
  Country: DE (occurrence: DE)
  Receive Date: 20211208
  Receipt Date: 20211220
  Transmission Date: 20220303
  Serious: Yes (Hospitalization, Other)
  Sender: FDA-Public Use
  Company Number: DE-CELLTRION INC.-2021DE016426

PATIENT

DRUGS (4)
  1. INFLIXIMAB [Suspect]
     Active Substance: INFLIXIMAB
     Indication: Crohn^s disease
     Dosage: 570 MG
     Route: 065
     Dates: start: 20210914
  2. PANTOZOL [Concomitant]
     Active Substance: PANTOPRAZOLE SODIUM
     Indication: Abdominal pain upper
     Dosage: 40 MG, ONCE PER DAY
     Dates: start: 2017
  3. CHOLECALCIFEROL [Concomitant]
     Active Substance: CHOLECALCIFEROL
     Indication: Vitamin D deficiency
     Dosage: 20000 IE ONCE PER WEEK
     Dates: start: 20190816
  4. LORA ADGC [Concomitant]
     Indication: Urticaria
     Dosage: 10 MG, ONCE PER DAY
     Dates: start: 20180828

REACTIONS (2)
  - Gastroenteritis [Recovered/Resolved]
  - Overdose [Unknown]

NARRATIVE: CASE EVENT DATE: 20211104
